FAERS Safety Report 13749594 (Version 2)
Quarter: 2017Q3

REPORT INFORMATION
  Report Type: Spontaneous
  Country: GB (occurrence: GB)
  Receive Date: 20170713
  Receipt Date: 20170718
  Transmission Date: 20171127
  Serious: Yes (Other)
  Sender: FDA-Public Use
  Company Number: GB-PFIZER INC-2017300015

PATIENT
  Age: 46 Year
  Sex: Female

DRUGS (1)
  1. CARBOPLATIN. [Suspect]
     Active Substance: CARBOPLATIN
     Indication: ENDOMETRIAL ADENOCARCINOMA
     Dosage: 1020 MG, CYCLIC (EVERY FOUR WEEKS FOR SIX SUCH COURSES)
     Route: 042

REACTIONS (2)
  - Acute promyelocytic leukaemia [Recovering/Resolving]
  - Second primary malignancy [Recovering/Resolving]
